FAERS Safety Report 20877528 (Version 1)
Quarter: 2022Q2

REPORT INFORMATION
  Report Type: Spontaneous
  Country: US (occurrence: US)
  Receive Date: 20220526
  Receipt Date: 20220526
  Transmission Date: 20220721
  Serious: Yes (Other)
  Sender: FDA-Public Use
  Company Number: US-GILEAD-2022-0582344

PATIENT
  Age: 39 Week
  Sex: Female

DRUGS (6)
  1. VEKLURY [Suspect]
     Active Substance: REMDESIVIR
     Indication: COVID-19 pneumonia
     Dosage: UNK
     Route: 064
  2. COVID-19 CONVALESCENT PLASMA [Concomitant]
     Active Substance: COVID-19 CONVALESCENT PLASMA
  3. TOCILIZUMAB [Concomitant]
     Active Substance: TOCILIZUMAB
  4. HYDROXYCHLOROQUINE [Concomitant]
     Active Substance: HYDROXYCHLOROQUINE
  5. CEFTRIAXONE [Concomitant]
     Active Substance: CEFTRIAXONE
  6. AZITHROMYCIN [Concomitant]
     Active Substance: AZITHROMYCIN

REACTIONS (3)
  - Foetal growth restriction [Unknown]
  - Developmental delay [Not Recovered/Not Resolved]
  - Foetal exposure during pregnancy [Recovered/Resolved]
